FAERS Safety Report 9357693 (Version 1)
Quarter: 2013Q2

REPORT INFORMATION
  Report Type: Spontaneous
  Country: US (occurrence: US)
  Receive Date: 20130620
  Receipt Date: 20130620
  Transmission Date: 20140414
  Serious: No
  Sender: FDA-Public Use
  Company Number: US-B.I. PHARMACEUTICALS,INC./RIDGEFIELD-2013-BI-16963BP

PATIENT
  Age: 52 Year
  Sex: Female
  Weight: 67 kg

DRUGS (1)
  1. VIRAMUNE [Suspect]
     Indication: HIV INFECTION
     Dosage: 400 MG
     Route: 048

REACTIONS (2)
  - Medication residue present [Not Recovered/Not Resolved]
  - Diarrhoea [Recovered/Resolved]
